FAERS Safety Report 13856985 (Version 1)
Quarter: 2017Q3

REPORT INFORMATION
  Report Type: Spontaneous
  Country: US (occurrence: US)
  Receive Date: 20170810
  Receipt Date: 20170810
  Transmission Date: 20171127
  Serious: No
  Sender: FDA-Public Use
  Company Number: US-ROCHE-1053372

PATIENT
  Age: 47 Year
  Sex: Female

DRUGS (1)
  1. TAMIFLU [Suspect]
     Active Substance: OSELTAMIVIR PHOSPHATE
     Indication: INFLUENZA LIKE ILLNESS
     Route: 048
     Dates: start: 20120322

REACTIONS (6)
  - Fatigue [Unknown]
  - Vomiting [Unknown]
  - Headache [Unknown]
  - Influenza like illness [Unknown]
  - Nausea [Unknown]
  - Pyrexia [Unknown]
